FAERS Safety Report 5245010-X (Version None)
Quarter: 2007Q1

REPORT INFORMATION
  Report Type: 
  Country: None (occurrence: None)
  Receive Date: 20070223
  Receipt Date: 20070213
  Transmission Date: 20070707
  Serious: Yes (Other)
  Sender: FDA-Public Use
  Company Number: PHNU2007DE00917

PATIENT
  Sex: Female

DRUGS (4)
  1. DIOVAN [Suspect]
     Dosage: 40 MG, BID
     Route: 048
     Dates: start: 20070207, end: 20070212
  2. DIOVAN [Suspect]
     Dosage: 40 MG, QD
     Route: 048
     Dates: start: 20070213
  3. ISOPTIN [Concomitant]
     Indication: TACHYCARDIA PAROXYSMAL
     Dosage: UNK, PRN
     Dates: end: 20070201
  4. TAMBOCOR [Concomitant]
     Indication: TACHYCARDIA PAROXYSMAL

REACTIONS (3)
  - BLOOD PRESSURE DECREASED [None]
  - BRADYCARDIA [None]
  - TACHYCARDIA PAROXYSMAL [None]
